FAERS Safety Report 4505269-0 (Version None)
Quarter: 2004Q4

REPORT INFORMATION
  Report Type: 
  Country: None (occurrence: None)
  Receive Date: 20041116
  Receipt Date: 20041028
  Transmission Date: 20050328
  Serious: Yes (Death, Hospitalization)
  Sender: FDA-Public Use
  Company Number: DSA_25303_2004

PATIENT
  Age: 93 Year
  Sex: Male

DRUGS (2)
  1. ORFIDAL [Suspect]
     Dosage: 1 MG Q DAY PO
     Route: 048
     Dates: end: 20031111
  2. MALERIL [Suspect]
     Dosage: 25 DF TID PO
     Route: 048
     Dates: end: 20031115

REACTIONS (2)
  - ILEUS PARALYTIC [None]
  - PNEUMONIA ASPIRATION [None]
